FAERS Safety Report 19947105 (Version 6)
Quarter: 2024Q4

REPORT INFORMATION
  Report Type: Spontaneous
  Country: US (occurrence: US)
  Receive Date: 20211012
  Receipt Date: 20241113
  Transmission Date: 20250115
  Serious: Yes (Hospitalization, Disabling, Other)
  Sender: ORGANON
  Company Number: US-ORGANON-O2110USA000740

PATIENT
  Sex: Female

DRUGS (6)
  1. SINGULAIR [Suspect]
     Active Substance: MONTELUKAST SODIUM
     Dosage: 10 MILLIGRAM
     Route: 048
     Dates: start: 2009, end: 2012
  2. SINGULAIR [Suspect]
     Active Substance: MONTELUKAST SODIUM
     Dosage: TAKE 1 TABLET BY MOUTH ONCE EVERY NIGHT AT BEDTIME- ORAL
     Route: 048
     Dates: start: 20200401, end: 20210915
  3. COLACE [Concomitant]
     Active Substance: DOCUSATE SODIUM
     Dosage: TAKE 1 CAP BY MOUTH ONCE DAILY ORAL
     Route: 048
     Dates: start: 20200723, end: 20220627
  4. ALLEGRA D [FEXOFENADINE HYDROCHLORIDE;PSEUDOEPHEDRINE HYDROCHLORIDE] [Concomitant]
     Dosage: 180-240 MG PO TABLET SR 24 HR TAKE 1 TABLET BY MOUTH ONCE DAILY
     Route: 048
     Dates: start: 20160201
  5. FLOVENT HFA [Concomitant]
     Active Substance: FLUTICASONE PROPIONATE
     Dosage: 110 MCG /ACT INHALE AEROSOL, INHALE 2 PUFFS INTO THE LUNGS EVERY 12 HOURS- INHALATION
     Dates: start: 20200914, end: 20210709
  6. PRILOSEC [Concomitant]
     Active Substance: OMEPRAZOLE MAGNESIUM
     Dosage: TAKE 1 CAPSULE BY MOUTH TWICE DAILY BEFORE BREAKFAST AND DINNER
     Route: 048
     Dates: start: 20210421, end: 20210709

REACTIONS (13)
  - Neuropsychological symptoms [Not Recovered/Not Resolved]
  - Migraine [Not Recovered/Not Resolved]
  - Sleep disorder [Not Recovered/Not Resolved]
  - Tic [Not Recovered/Not Resolved]
  - Generalised anxiety disorder [Recovering/Resolving]
  - Depression [Recovering/Resolving]
  - Insomnia [Not Recovered/Not Resolved]
  - Tremor [Not Recovered/Not Resolved]
  - Muscle spasms [Not Recovered/Not Resolved]
  - Bipolar I disorder [Unknown]
  - Restless legs syndrome [Unknown]
  - Headache [Unknown]
  - Back pain [Unknown]

NARRATIVE: CASE EVENT DATE: 20100101
